FAERS Safety Report 17877115 (Version 2)
Quarter: 2021Q2

REPORT INFORMATION
  Report Type: Spontaneous
  Country: US (occurrence: US)
  Receive Date: 20200609
  Receipt Date: 20210507
  Transmission Date: 20210717
  Serious: Yes (Other)
  Sender: FDA-Public Use
  Company Number: US-SA-2020SA147881

PATIENT
  Age: 42 Year
  Sex: Female

DRUGS (2)
  1. ZANTAC [Suspect]
     Active Substance: RANITIDINE HYDROCHLORIDE
     Indication: ABDOMINAL DISCOMFORT
  2. ZANTAC [Suspect]
     Active Substance: RANITIDINE HYDROCHLORIDE
     Indication: DYSPEPSIA
     Dosage: 150 MG
     Dates: start: 198001, end: 201905

REACTIONS (5)
  - Gastrointestinal carcinoma [Unknown]
  - Breast disorder [Unknown]
  - Colorectal cancer stage II [Unknown]
  - Hepatic cancer stage II [Unknown]
  - Gastric cancer stage II [Unknown]

NARRATIVE: CASE EVENT DATE: 20170618
